FAERS Safety Report 8815970 (Version 6)
Quarter: 2021Q1

REPORT INFORMATION
  Report Type: Spontaneous
  Country: US (occurrence: US)
  Receive Date: 20120928
  Receipt Date: 20210218
  Transmission Date: 20210420
  Serious: Yes (Hospitalization, Disabling, Other)
  Sender: FDA-Public Use
  Company Number: US-009507513-1205USA04405

PATIENT
  Sex: Female
  Weight: 56.24 kg

DRUGS (10)
  1. CALCIUM (UNSPECIFIED) [Concomitant]
     Active Substance: CALCIUM
     Indication: OSTEOPOROSIS
     Dosage: 1200 IU, QD
     Dates: start: 2008
  2. BENADRYL [Concomitant]
     Active Substance: DIPHENHYDRAMINE HYDROCHLORIDE
     Dosage: UNK
  3. FOSAMAX [Suspect]
     Active Substance: ALENDRONATE SODIUM
     Indication: OSTEOPOROSIS
     Dosage: 70 MILLIGRAM, QW
     Route: 048
     Dates: start: 200202, end: 200801
  4. FOSAMAX [Suspect]
     Active Substance: ALENDRONATE SODIUM
     Indication: OSTEOPOROSIS
     Dosage: 70 MILLIGRAM
     Route: 048
     Dates: start: 200802, end: 200908
  5. SYNTHROID [Concomitant]
     Active Substance: LEVOTHYROXINE SODIUM
     Indication: HYPOTHYROIDISM
  6. FOSAMAX [Suspect]
     Active Substance: ALENDRONATE SODIUM
     Dosage: UNK
     Route: 048
     Dates: start: 200201
  7. FOSAMAX PLUS D [Suspect]
     Active Substance: ALENDRONATE SODIUM\CHOLECALCIFEROL
     Dosage: UNK, QW
     Route: 048
     Dates: start: 20080327
  8. ALENDRONATE SODIUM. [Suspect]
     Active Substance: ALENDRONATE SODIUM
     Dosage: 70 MG, QW
     Route: 048
     Dates: start: 20080327, end: 20081212
  9. PERCOCET [Concomitant]
     Active Substance: ACETAMINOPHEN\OXYCODONE HYDROCHLORIDE
  10. HORMONES (UNSPECIFIED) [Concomitant]
     Active Substance: UNSPECIFIED INGREDIENT
     Dosage: UNK
     Dates: start: 2002, end: 2004

REACTIONS (82)
  - Femur fracture [Unknown]
  - Open reduction of fracture [Unknown]
  - Tonsillectomy [Unknown]
  - Adenoidectomy [Unknown]
  - Hip surgery [Recovering/Resolving]
  - Adverse event [Unknown]
  - Road traffic accident [Unknown]
  - Haemorrhoids [Unknown]
  - Spinal osteoarthritis [Unknown]
  - Osteoarthritis [Unknown]
  - Tendon rupture [Unknown]
  - Vertebroplasty [Unknown]
  - Functional gastrointestinal disorder [Recovering/Resolving]
  - Arthralgia [Unknown]
  - Limb asymmetry [Unknown]
  - Osteoarthritis [Unknown]
  - Contusion [Unknown]
  - Bone marrow oedema [Unknown]
  - Symphysiolysis [Unknown]
  - Anaemia postoperative [Unknown]
  - Osteoporosis [Unknown]
  - Multiple fractures [Unknown]
  - Neuropathy peripheral [Unknown]
  - Back pain [Unknown]
  - Dry eye [Unknown]
  - Blood cholesterol increased [Unknown]
  - Road traffic accident [Unknown]
  - Head injury [Unknown]
  - Abdominal discomfort [Unknown]
  - Visual impairment [Unknown]
  - Sciatica [Unknown]
  - Headache [Unknown]
  - Headache [Unknown]
  - Injury [Unknown]
  - Cholecystitis acute [Unknown]
  - Suicidal ideation [Unknown]
  - Spinal compression fracture [Unknown]
  - Tendonitis [Unknown]
  - Exostosis [Unknown]
  - Bone density decreased [Unknown]
  - Appendicectomy [Unknown]
  - Anaemia postoperative [Recovered/Resolved]
  - Depression suicidal [Unknown]
  - Hypoaesthesia [Unknown]
  - Depression [Unknown]
  - Drug tolerance [Unknown]
  - Headache [Unknown]
  - Bone cyst [Unknown]
  - Pneumonia [Unknown]
  - Carotid endarterectomy [Unknown]
  - Cerebrovascular accident [Unknown]
  - Carotid artery stenosis [Unknown]
  - Cataract [Unknown]
  - Pollakiuria [Unknown]
  - Osteopenia [Unknown]
  - Post-traumatic neck syndrome [Unknown]
  - Bronchitis [Unknown]
  - Muscle strain [Unknown]
  - Malaise [Unknown]
  - Bone marrow oedema [Unknown]
  - Malnutrition [Unknown]
  - Ischaemic cerebral infarction [Unknown]
  - Spinal compression fracture [Unknown]
  - Cerebral atrophy [Unknown]
  - Memory impairment [Unknown]
  - Pelvic fracture [Unknown]
  - Herpes zoster [Unknown]
  - Nystagmus [Unknown]
  - Haemorrhoid operation [Unknown]
  - Diarrhoea [Unknown]
  - Femur fracture [Recovered/Resolved]
  - Intervertebral disc protrusion [Unknown]
  - Hypoacusis [Unknown]
  - Cholecystectomy [Unknown]
  - Crohn^s disease [Unknown]
  - Trendelenburg^s symptom [Unknown]
  - Bursitis [Unknown]
  - Cubital tunnel syndrome [Unknown]
  - Bronchitis [Unknown]
  - Hypertension [Unknown]
  - Pain in extremity [Unknown]
  - Flatulence [Unknown]

NARRATIVE: CASE EVENT DATE: 200201
